FAERS Safety Report 18790391 (Version 1)
Quarter: 2021Q1

REPORT INFORMATION
  Report Type: Spontaneous
  Country: AT (occurrence: AT)
  Receive Date: 20210126
  Receipt Date: 20210126
  Transmission Date: 20210419
  Serious: Yes (Other)
  Sender: FDA-Public Use
  Company Number: AT-PFIZER INC-2021048757

PATIENT
  Age: 33 Year
  Sex: Female

DRUGS (1)
  1. DALACIN C [Suspect]
     Active Substance: CLINDAMYCIN
     Dosage: ACCORDING TO THE LABEL
     Route: 048
     Dates: start: 20150101, end: 20150101

REACTIONS (3)
  - Type IV hypersensitivity reaction [Recovered/Resolved]
  - Pruritus [Recovered/Resolved]
  - Rash macular [Recovered/Resolved]

NARRATIVE: CASE EVENT DATE: 20150101
